FAERS Safety Report 11714473 (Version 2)
Quarter: 2016Q1

REPORT INFORMATION
  Report Type: Spontaneous
  Country: US (occurrence: US)
  Receive Date: 20151109
  Receipt Date: 20160126
  Transmission Date: 20160525
  Serious: Yes (Other)
  Sender: FDA-Public Use
  Company Number: US-BAYER-2015-463320

PATIENT
  Age: 22 Year
  Sex: Female
  Weight: 60.18 kg

DRUGS (1)
  1. MIRENA [Suspect]
     Active Substance: LEVONORGESTREL
     Indication: CONTRACEPTION
     Dosage: 20 MCG/24HR, CONT
     Route: 015
     Dates: start: 20140414

REACTIONS (6)
  - Pelvic pain [None]
  - Metrorrhagia [None]
  - Medical device discomfort [None]
  - Pain [None]
  - Embedded device [None]
  - Genital discharge [None]

NARRATIVE: CASE EVENT DATE: 20151027
